FAERS Safety Report 7391358-2 (Version None)
Quarter: 2011Q2

REPORT INFORMATION
  Report Type: 
  Country: None (occurrence: None)
  Receive Date: 20110404
  Receipt Date: 20110331
  Transmission Date: 20111010
  Serious: Yes (Death, Life-Threatening, Hospitalization)
  Sender: FDA-Public Use
  Company Number: TW-SANOFI-AVENTIS-2011SA019741

PATIENT
  Sex: Female
  Weight: 57.3 kg

DRUGS (5)
  1. EPIRUBICIN [Suspect]
     Dates: start: 20101228, end: 20101228
  2. TAXOTERE [Suspect]
     Indication: BREAST CANCER
     Route: 041
     Dates: start: 20100930, end: 20100930
  3. GRANOCYTE [Concomitant]
     Dates: start: 20101230, end: 20101231
  4. TAXOTERE [Suspect]
     Route: 041
     Dates: start: 20101228, end: 20101228
  5. EPIRUBICIN [Suspect]
     Indication: BREAST CANCER
     Dates: start: 20100930, end: 20100930

REACTIONS (4)
  - MULTI-ORGAN FAILURE [None]
  - FEBRILE NEUTROPENIA [None]
  - ACUTE RESPIRATORY DISTRESS SYNDROME [None]
  - PNEUMONIA [None]
